FAERS Safety Report 13268732 (Version 1)
Quarter: 2017Q1

REPORT INFORMATION
  Report Type: Spontaneous
  Country: US (occurrence: US)
  Receive Date: 20170224
  Receipt Date: 20170224
  Transmission Date: 20170428
  Serious: Yes (Other)
  Sender: FDA-Public Use
  Company Number: US-TEVA-742317USA

PATIENT
  Age: 76 Year
  Sex: Male

DRUGS (13)
  1. PLAVIX [Concomitant]
     Active Substance: CLOPIDOGREL BISULFATE
  2. IMDUR [Concomitant]
     Active Substance: ISOSORBIDE MONONITRATE
  3. ALLOPURINOL. [Concomitant]
     Active Substance: ALLOPURINOL
  4. ASPIRIN. [Concomitant]
     Active Substance: ASPIRIN
  5. PREDNISONE. [Suspect]
     Active Substance: PREDNISONE
     Indication: PRODUCT USED FOR UNKNOWN INDICATION
     Route: 065
  6. LORAZEPAM. [Concomitant]
     Active Substance: LORAZEPAM
  7. ATORVASTATIN [Concomitant]
     Active Substance: ATORVASTATIN
  8. ISOSORBIDE. [Concomitant]
     Active Substance: ISOSORBIDE
  9. PANTOPRAZOLE [Concomitant]
     Active Substance: PANTOPRAZOLE SODIUM
  10. JAKAFI [Suspect]
     Active Substance: RUXOLITINIB
     Indication: MYELOFIBROSIS
     Dosage: 40 MILLIGRAM DAILY;
     Route: 048
     Dates: start: 20160201
  11. NITROGLYCERIN. [Concomitant]
     Active Substance: NITROGLYCERIN
  12. PRILOSEC [Concomitant]
     Active Substance: OMEPRAZOLE MAGNESIUM
  13. ZOCOR [Concomitant]
     Active Substance: SIMVASTATIN

REACTIONS (3)
  - Coronary artery occlusion [Unknown]
  - Weight increased [Not Recovered/Not Resolved]
  - Diarrhoea [Unknown]

NARRATIVE: CASE EVENT DATE: 201602
